FAERS Safety Report 4630051-3 (Version None)
Quarter: 2005Q2

REPORT INFORMATION
  Report Type: 
  Country: None (occurrence: None)
  Receive Date: 20050408
  Receipt Date: 20050329
  Transmission Date: 20051028
  Serious: Yes (Hospitalization)
  Sender: FDA-Public Use
  Company Number: FR-ABBOTT-05P-056-0295428-00

PATIENT
  Age: 66 Year
  Sex: Male

DRUGS (4)
  1. FENOFIBRATE [Suspect]
     Indication: HYPERCHOLESTEROLAEMIA
     Route: 048
  2. CANDESARTAN CILEXETIL [Suspect]
     Indication: HYPERTENSION
     Route: 048
  3. ALLOPURINOL [Suspect]
     Indication: HYPERURICAEMIA
     Route: 048
  4. FLUINDIONE [Suspect]
     Indication: PORTAL VEIN THROMBOSIS
     Route: 048
     Dates: start: 20050105, end: 20050207

REACTIONS (8)
  - CHEILITIS [None]
  - DRUG RASH WITH EOSINOPHILIA AND SYSTEMIC SYMPTOMS [None]
  - ERYTHEMA MULTIFORME [None]
  - EYELID OEDEMA [None]
  - PRURITUS [None]
  - PURPURA [None]
  - RASH PAPULAR [None]
  - RASH PUSTULAR [None]
